FAERS Safety Report 15285209 (Version 1)
Quarter: 2018Q3

REPORT INFORMATION
  Report Type: Spontaneous
  Country: US (occurrence: US)
  Receive Date: 20180816
  Receipt Date: 20180816
  Transmission Date: 20181010
  Serious: Yes (Hospitalization, Disabling, Other)
  Sender: FDA-Public Use
  Company Number: US-JNJFOC-20180815449

PATIENT
  Age: 50 Year
  Sex: Male

DRUGS (1)
  1. INVOKANA [Suspect]
     Active Substance: CANAGLIFLOZIN
     Indication: TYPE 2 DIABETES MELLITUS
     Route: 048
     Dates: start: 20160617

REACTIONS (9)
  - Osteomyelitis [Unknown]
  - Gangrene [Unknown]
  - Metabolic acidosis [Recovered/Resolved]
  - Leg amputation [Unknown]
  - Peripheral ischaemia [Unknown]
  - Toe amputation [Unknown]
  - Sepsis [Recovered/Resolved]
  - Diabetic foot [Unknown]
  - Osteomyelitis [Unknown]

NARRATIVE: CASE EVENT DATE: 201607
